FAERS Safety Report 10027492 (Version 3)
Quarter: 2014Q2

REPORT INFORMATION
  Report Type: Spontaneous
  Country: US (occurrence: US)
  Receive Date: 20140321
  Receipt Date: 20140506
  Transmission Date: 20141212
  Serious: Yes (Hospitalization)
  Sender: FDA-Public Use
  Company Number: US-PFIZER INC-2014079567

PATIENT
  Age: 54 Year
  Sex: Male
  Weight: 102.04 kg

DRUGS (3)
  1. DEPO-TESTOSTERONE [Suspect]
     Indication: ANDROGEN DEFICIENCY
     Dosage: 0.5 ML, WEEKLY
     Route: 030
     Dates: start: 20131024
  2. DEPO-TESTOSTERONE [Suspect]
     Dosage: 0.6 ML, WEEKLY
     Route: 030
  3. DEPO-TESTOSTERONE [Suspect]
     Dosage: 0.5 ML, WEEKLY
     Route: 030

REACTIONS (7)
  - Nausea [Unknown]
  - Vomiting [Unknown]
  - Dehydration [Unknown]
  - Food poisoning [Unknown]
  - Malaise [Unknown]
  - Injection site pruritus [Unknown]
  - Injection site pain [Unknown]
